FAERS Safety Report 5304631-6 (Version None)
Quarter: 2007Q2

REPORT INFORMATION
  Report Type: 
  Country: None (occurrence: None)
  Receive Date: 20070423
  Receipt Date: 20070418
  Transmission Date: 20071010
  Serious: Yes (Death)
  Sender: FDA-Public Use
  Company Number: ZA-GLAXOSMITHKLINE-B0467250A

PATIENT
  Age: 2 Month
  Sex: Male

DRUGS (3)
  1. ZIDOVUDINE [Suspect]
     Indication: HIV INFECTION
     Dosage: 60MG PER DAY
     Route: 048
     Dates: start: 20070219, end: 20070305
  2. LAMIVUDINE [Suspect]
     Indication: HIV INFECTION
     Dosage: 15MG PER DAY
     Route: 048
     Dates: start: 20070219, end: 20070305
  3. COTRIMOXAZOLE [Concomitant]

REACTIONS (1)
  - DEATH [None]
